FAERS Safety Report 7471972-6 (Version None)
Quarter: 2011Q2

REPORT INFORMATION
  Report Type: 
  Country: None (occurrence: None)
  Receive Date: 20110511
  Receipt Date: 20100820
  Transmission Date: 20111010
  Serious: No
  Sender: FDA-Public Use
  Company Number: A0878022A

PATIENT
  Age: 46 Year
  Sex: Female

DRUGS (1)
  1. TYKERB [Suspect]
     Dosage: 250MG UNKNOWN
     Route: 065
     Dates: start: 20090910

REACTIONS (3)
  - SWOLLEN TONGUE [None]
  - LIP SWELLING [None]
  - ADVERSE DRUG REACTION [None]
